FAERS Safety Report 10723191 (Version 1)
Quarter: 2015Q1

REPORT INFORMATION
  Report Type: Spontaneous
  Country: US (occurrence: US)
  Receive Date: 20150120
  Receipt Date: 20150120
  Transmission Date: 20150721
  Serious: No
  Sender: FDA-Public Use
  Company Number: US-PFIZER INC-2015014303

PATIENT
  Age: 53 Year
  Sex: Male

DRUGS (2)
  1. IBUPROFEN. [Suspect]
     Active Substance: IBUPROFEN
     Dosage: UNK
  2. PROPOXYPHENE NAPSYLATE [Suspect]
     Active Substance: PROPOXYPHENE NAPSYLATE
     Dosage: UNK

REACTIONS (3)
  - Vomiting [Unknown]
  - Nausea [Unknown]
  - Drug hypersensitivity [Unknown]
